FAERS Safety Report 13649917 (Version 1)
Quarter: 2017Q2

REPORT INFORMATION
  Report Type: Report from Study
  Country: US (occurrence: US)
  Receive Date: 20170614
  Receipt Date: 20170614
  Transmission Date: 20170830
  Serious: Yes (Other)
  Sender: FDA-Public Use
  Company Number: US-GILEAD-2017-0277367

PATIENT
  Age: 61 Year
  Sex: Female

DRUGS (13)
  1. VITAMIN D                          /00107901/ [Concomitant]
     Active Substance: ERGOCALCIFEROL
  2. DOCUSATE SODIUM. [Concomitant]
     Active Substance: DOCUSATE SODIUM
  3. IRON [Concomitant]
     Active Substance: IRON
  4. AMBRISENTAN [Suspect]
     Active Substance: AMBRISENTAN
     Indication: PULMONARY HYPERTENSION
     Dosage: 10 MG, QD
     Route: 065
     Dates: start: 20160818
  5. PANTOPRAZOLE [Concomitant]
     Active Substance: PANTOPRAZOLE
  6. PROMETHAZINE [Concomitant]
     Active Substance: PROMETHAZINE\PROMETHAZINE HYDROCHLORIDE
  7. COLCRYS [Concomitant]
     Active Substance: COLCHICINE
  8. TORSEMIDE. [Concomitant]
     Active Substance: TORSEMIDE
  9. METFORMIN [Concomitant]
     Active Substance: METFORMIN HYDROCHLORIDE
  10. POLYETHYLENE GLYCOL [Concomitant]
     Active Substance: POLYETHYLENE GLYCOLS
  11. VENTOLIN [Concomitant]
     Active Substance: ALBUTEROL SULFATE
  12. SYMBICORT [Concomitant]
     Active Substance: BUDESONIDE\FORMOTEROL FUMARATE DIHYDRATE
  13. HYDROCODONE BITARTRATE AND ACETAMINOPHEN [Concomitant]
     Active Substance: ACETAMINOPHEN\HYDROCODONE BITARTRATE

REACTIONS (1)
  - Lung neoplasm malignant [Not Recovered/Not Resolved]
